FAERS Safety Report 16631488 (Version 2)
Quarter: 2020Q1

REPORT INFORMATION
  Report Type: Spontaneous
  Country: US (occurrence: US)
  Receive Date: 20190725
  Receipt Date: 20200323
  Transmission Date: 20200409
  Serious: Yes (Other)
  Sender: FDA-Public Use
  Company Number: US-JNJFOC-20190733415

PATIENT
  Age: 77 Year
  Sex: Male

DRUGS (4)
  1. LUPRON [Concomitant]
     Active Substance: LEUPROLIDE ACETATE
     Indication: PROSTATIC SPECIFIC ANTIGEN INCREASED
     Route: 065
     Dates: start: 201601, end: 201909
  2. LOSARTAN. [Concomitant]
     Active Substance: LOSARTAN
     Indication: HYPERTENSION
     Route: 065
     Dates: end: 201908
  3. ZYTIGA [Suspect]
     Active Substance: ABIRATERONE ACETATE
     Indication: PROSTATE CANCER
     Route: 048
  4. ZYTIGA [Suspect]
     Active Substance: ABIRATERONE ACETATE
     Route: 048

REACTIONS (5)
  - Abdominal pain upper [Recovered/Resolved]
  - Wrong technique in product usage process [Unknown]
  - Transient ischaemic attack [Recovered/Resolved]
  - Hypertension [Recovered/Resolved]
  - Blister [Recovered/Resolved]

NARRATIVE: CASE EVENT DATE: 20190806
